FAERS Safety Report 6029850-5 (Version None)
Quarter: 2009Q1

REPORT INFORMATION
  Report Type: 
  Country: None (occurrence: None)
  Receive Date: 20090106
  Receipt Date: 20090106
  Transmission Date: 20090719
  Serious: No
  Sender: FDA-Public Use
  Company Number: None

PATIENT
  Sex: Male
  Weight: 85.2762 kg

DRUGS (1)
  1. CIPROFLOXACIN HCL [Suspect]
     Dosage: 2 PER DAY ONE IN MORNING ONE IN EVENING
     Dates: start: 20081201, end: 20081215

REACTIONS (4)
  - FATIGUE [None]
  - HEADACHE [None]
  - NAUSEA [None]
  - POISONING [None]
